FAERS Safety Report 7362303-0 (Version None)
Quarter: 2011Q1

REPORT INFORMATION
  Report Type: 
  Country: None (occurrence: None)
  Receive Date: 20110318
  Receipt Date: 20110316
  Transmission Date: 20110831
  Serious: Yes (Life-Threatening, Hospitalization)
  Sender: FDA-Public Use
  Company Number: PHHY2011US19760

PATIENT
  Sex: Female

DRUGS (6)
  1. AMBIEN [Concomitant]
     Dosage: 10 MG, QHS
     Route: 048
  2. GILENYA [Suspect]
     Indication: RELAPSING-REMITTING MULTIPLE SCLEROSIS
     Dosage: 0.5 MG, QD
     Route: 048
     Dates: start: 20110303, end: 20110303
  3. LAMICTAL [Concomitant]
     Dosage: 200 MG, QHS
  4. SEROQUEL [Concomitant]
     Dosage: 25 MG, QHS
     Route: 048
  5. NEURONTIN [Concomitant]
     Dosage: UNK
  6. ASPIRIN [Concomitant]
     Dosage: 325 MG, QD
     Route: 048

REACTIONS (6)
  - FATIGUE [None]
  - BRADYCARDIA [None]
  - DIZZINESS [None]
  - BLOOD PRESSURE DECREASED [None]
  - ATRIOVENTRICULAR BLOCK SECOND DEGREE [None]
  - ATRIOVENTRICULAR BLOCK FIRST DEGREE [None]
